FAERS Safety Report 10135958 (Version 9)
Quarter: 2016Q2

REPORT INFORMATION
  Report Type: Report from Study
  Country: JP (occurrence: JP)
  Receive Date: 20140429
  Receipt Date: 20160407
  Transmission Date: 20160815
  Serious: Yes (Hospitalization, Other)
  Sender: FDA-Public Use
  Company Number: JP-ROCHE-1391236

PATIENT
  Age: 63 Year
  Sex: Male
  Weight: 100 kg

DRUGS (7)
  1. CADUET [Concomitant]
     Active Substance: AMLODIPINE BESYLATE\ATORVASTATIN CALCIUM
     Route: 048
  2. RINDERON V [Concomitant]
     Active Substance: BETAMETHASONE VALERATE
     Route: 050
  3. MOXIFLOXACIN HYDROCHLORIDE. [Concomitant]
     Active Substance: MOXIFLOXACIN HYDROCHLORIDE
     Route: 065
     Dates: start: 20140328, end: 20140404
  4. RANIBIZUMAB [Suspect]
     Active Substance: RANIBIZUMAB
     Route: 050
  5. BENZBROMARONE [Concomitant]
     Active Substance: BENZBROMARONE
     Route: 048
  6. RANIBIZUMAB [Suspect]
     Active Substance: RANIBIZUMAB
     Indication: RETINAL VEIN OCCLUSION
     Dosage: PER TIME
     Route: 050
     Dates: start: 20140401, end: 20140401
  7. DICLOD [Concomitant]
     Active Substance: DICLOFENAC SODIUM
     Route: 050

REACTIONS (3)
  - Macular hole [Recovered/Resolved]
  - Cataract [Unknown]
  - Retinal detachment [Unknown]

NARRATIVE: CASE EVENT DATE: 20140410
